FAERS Safety Report 11156298 (Version 2)
Quarter: 2015Q2

REPORT INFORMATION
  Report Type: Spontaneous
  Country: US (occurrence: US)
  Receive Date: 20150602
  Receipt Date: 20150611
  Transmission Date: 20150821
  Serious: Yes (Other)
  Sender: FDA-Public Use
  Company Number: US-TEVA-565330USA

PATIENT
  Age: 51 Year
  Sex: Female

DRUGS (1)
  1. LEVOCETIRIZINE DIHYDROCHLORIDE. [Suspect]
     Active Substance: LEVOCETIRIZINE DIHYDROCHLORIDE
     Indication: HYPERSENSITIVITY
     Route: 065
     Dates: start: 20150513, end: 20150518

REACTIONS (13)
  - Arthralgia [Unknown]
  - Nausea [Unknown]
  - Pruritus [Unknown]
  - Myalgia [Unknown]
  - Eye pruritus [Unknown]
  - Burning sensation [Unknown]
  - Local swelling [Unknown]
  - Musculoskeletal stiffness [Unknown]
  - Pruritus [Not Recovered/Not Resolved]
  - Musculoskeletal stiffness [Unknown]
  - Ear swelling [Unknown]
  - Ear discomfort [Unknown]
  - Pain [Unknown]

NARRATIVE: CASE EVENT DATE: 20150520
